FAERS Safety Report 15793713 (Version 1)
Quarter: 2019Q1

REPORT INFORMATION
  Report Type: Spontaneous
  Country: FR (occurrence: FR)
  Receive Date: 20190107
  Receipt Date: 20190107
  Transmission Date: 20190417
  Serious: Yes (Life-Threatening)
  Sender: FDA-Public Use
  Company Number: FR-PFIZER INC-2019004304

PATIENT
  Age: 53 Year
  Sex: Male

DRUGS (8)
  1. XANAX [Suspect]
     Active Substance: ALPRAZOLAM
     Indication: PSYCHOTIC DISORDER
     Dosage: 0.5 MG, 1X/DAY
     Route: 048
     Dates: end: 20181120
  2. TEGRETOL [Concomitant]
     Active Substance: CARBAMAZEPINE
  3. GARDENAL [PHENOBARBITAL SODIUM] [Concomitant]
  4. LARGACTIL [CHLORPROMAZINE HYDROCHLORIDE] [Suspect]
     Active Substance: CHLORPROMAZINE HYDROCHLORIDE
     Indication: PSYCHOTIC DISORDER
     Dosage: 300 MG, 1X/DAY
     Route: 048
     Dates: end: 20181120
  5. IMOVANE [Suspect]
     Active Substance: ZOPICLONE
     Indication: INSOMNIA
     Dosage: 1 DF, 1X/DAY
     Route: 048
     Dates: end: 20181120
  6. TIAPRIDAL [Suspect]
     Active Substance: TIAPRIDE HYDROCHLORIDE
     Indication: PSYCHOTIC DISORDER
     Dosage: 300 MG, 1X/DAY
     Route: 048
     Dates: end: 20181120
  7. PARKINANE LP [Suspect]
     Active Substance: TRIHEXYPHENIDYL HYDROCHLORIDE
     Indication: PARKINSON^S DISEASE
     Dosage: 10 MG, 1X/DAY
     Route: 048
     Dates: end: 20181120
  8. TERCIAN [CYAMEMAZINE TARTRATE] [Suspect]
     Active Substance: CYAMEMAZINE
     Indication: PSYCHOTIC DISORDER
     Dosage: 125 MG, 1X/DAY
     Route: 048
     Dates: end: 20181120

REACTIONS (3)
  - Dyspnoea [Recovered/Resolved]
  - Somnolence [Recovered/Resolved]
  - Acute respiratory failure [Recovered/Resolved]

NARRATIVE: CASE EVENT DATE: 20181120
